FAERS Safety Report 5612979-0 (Version None)
Quarter: 2008Q1

REPORT INFORMATION
  Report Type: 
  Country: None (occurrence: None)
  Receive Date: 20080204
  Receipt Date: 20080123
  Transmission Date: 20080703
  Serious: Yes (Life-Threatening, Other)
  Sender: FDA-Public Use
  Company Number: GB-PFIZER INC-2008000968

PATIENT
  Age: 31 Year
  Sex: Male
  Weight: 70 kg

DRUGS (2)
  1. CHANTIX [Suspect]
     Indication: EX-SMOKER
     Dosage: TEXT:1 DOSE FORM
     Route: 048
     Dates: start: 20071206, end: 20071213
  2. ALBUTEROL [Concomitant]
     Dosage: TEXT:2 DOSE FORM

REACTIONS (2)
  - DEPRESSION SUICIDAL [None]
  - INSOMNIA [None]
